FAERS Safety Report 26052306 (Version 1)
Quarter: 2025Q4

REPORT INFORMATION
  Report Type: Report from Study
  Country: US (occurrence: US)
  Receive Date: 20251117
  Receipt Date: 20251117
  Transmission Date: 20260118
  Serious: Yes (Other)
  Sender: JAZZ
  Company Number: US-JAZZ PHARMACEUTICALS-2025-US-025883

PATIENT
  Sex: Male

DRUGS (14)
  1. SODIUM OXYBATE [Suspect]
     Active Substance: SODIUM OXYBATE
     Indication: Narcolepsy
     Dosage: UNK
  2. SODIUM OXYBATE [Suspect]
     Active Substance: SODIUM OXYBATE
     Indication: Cataplexy
  3. SODIUM OXYBATE [Suspect]
     Active Substance: SODIUM OXYBATE
     Indication: Somnolence
  4. VITAMINS [Concomitant]
     Active Substance: VITAMINS
     Indication: Product used for unknown indication
     Dosage: UNK
  5. CLONAZEPAM [Concomitant]
     Active Substance: CLONAZEPAM
     Indication: Product used for unknown indication
     Dosage: UNK
  6. TRAZODONE [Concomitant]
     Active Substance: TRAZODONE HYDROCHLORIDE
     Indication: Product used for unknown indication
     Dosage: UNK
  7. GABAPENTIN [Concomitant]
     Active Substance: GABAPENTIN
     Indication: Product used for unknown indication
     Dosage: UNK
  8. CARVEDILOL [Concomitant]
     Active Substance: CARVEDILOL
     Indication: Blood pressure increased
     Dosage: UNK
  9. CARBIDOPA\LEVODOPA [Concomitant]
     Active Substance: CARBIDOPA\LEVODOPA
     Indication: Product used for unknown indication
     Dosage: UNK
  10. MIRTAZAPINE [Concomitant]
     Active Substance: MIRTAZAPINE
     Indication: Product used for unknown indication
     Dosage: 15 MILLIGRAM HALF TABLET
  11. SAPHRIS [Concomitant]
     Active Substance: ASENAPINE MALEATE
     Indication: Product used for unknown indication
  12. IRBESARTAN [Concomitant]
     Active Substance: IRBESARTAN
     Indication: Blood pressure increased
  13. LUNESTA [Concomitant]
     Active Substance: ESZOPICLONE
     Indication: Product used for unknown indication
  14. IPRATROPIUM [Concomitant]
     Active Substance: IPRATROPIUM
     Indication: Rhinorrhoea

REACTIONS (8)
  - Pericardial effusion [Unknown]
  - Pleural effusion [Unknown]
  - Malaise [Unknown]
  - Migraine [Unknown]
  - Visual impairment [Unknown]
  - Weight decreased [Unknown]
  - Nausea [Unknown]
  - Intentional product use issue [Unknown]
